FAERS Safety Report 9527838 (Version 1)
Quarter: 2013Q1

REPORT INFORMATION
  Report Type: Spontaneous
  Country: US (occurrence: None)
  Receive Date: 20130313
  Receipt Date: 20130313
  Transmission Date: 20140127
  Serious: Yes (Hospitalization)
  Sender: FDA-Public Use
  Company Number: 1000029798

PATIENT
  Age: 58 Year
  Sex: Female

DRUGS (12)
  1. SAVELLA [Suspect]
     Indication: MYOFASCIAL PAIN SYNDROME
     Dosage: 12.5 MG (12.5 MG,1 IN 1 D)
     Dates: start: 201105, end: 201105
  2. SAVELLA [Suspect]
     Indication: FIBROMYALGIA
     Dosage: 12.5 MG (12.5 MG,1 IN 1 D)
     Dates: start: 201105, end: 201105
  3. SAVELLA [Suspect]
     Indication: MYOFASCIAL PAIN SYNDROME
     Dosage: 100 MG BID (100 MG,2 IN 1 D)
     Dates: end: 201203
  4. SAVELLA [Suspect]
     Indication: FIBROMYALGIA
     Dosage: 100 MG BID (100 MG,2 IN 1 D)
     Dates: end: 201203
  5. OXYCONTIN (OXYCODONE) [Concomitant]
  6. LASIX (FUROSEMIDE) (FUROSEMIDE) [Concomitant]
  7. COREG (CARVEDILOL) (CARVEDILOL) [Concomitant]
  8. LIPITOR (ATORVASTATIN CALCIUM) (ATORVASTATIN CALCIUM)? [Concomitant]
  9. LEXAPRO (ESCITALOPRAM OXALATE) (ESCITALOPRAM OXALATE)? [Concomitant]
  10. XANAX (ALPRAZOLAM) (ALPRAZOLAM) [Concomitant]
  11. MINERALS NOS (MINERALS NOS) (MINERALS NOS) [Concomitant]
  12. VITAMINS NOS (VITAMINS NOS) (VITAMINS NOS) [Concomitant]

REACTIONS (1)
  - Renal failure acute [None]
